FAERS Safety Report 6328688-9 (Version None)
Quarter: 2009Q3

REPORT INFORMATION
  Report Type: 
  Country: None (occurrence: None)
  Receive Date: 20090826
  Receipt Date: 20090818
  Transmission Date: 20100115
  Serious: Yes (Death, Other)
  Sender: FDA-Public Use
  Company Number: PHEH2009US09023

PATIENT
  Sex: Female

DRUGS (7)
  1. GLEEVEC [Suspect]
     Indication: CHRONIC MYELOID LEUKAEMIA
     Dosage: 400 MG DAY
     Route: 048
  2. ATENOLOL [Concomitant]
  3. SYNTHROID [Concomitant]
  4. ZOCOR [Concomitant]
  5. PLAVIX [Concomitant]
  6. FLAGYL [Concomitant]
  7. ARANESP [Concomitant]

REACTIONS (8)
  - CONTUSION [None]
  - FALL [None]
  - HAEMATOMA [None]
  - PNEUMONIA [None]
  - SPEECH DISORDER [None]
  - SUPRANUCLEAR PALSY [None]
  - SWELLING [None]
  - UPPER LIMB FRACTURE [None]
